FAERS Safety Report 4919652-2 (Version None)
Quarter: 2006Q1

REPORT INFORMATION
  Report Type: 
  Country: None (occurrence: None)
  Receive Date: 20060216
  Receipt Date: 20060208
  Transmission Date: 20060701
  Serious: Yes (Hospitalization)
  Sender: FDA-Public Use
  Company Number: 2005093886

PATIENT
  Sex: Female

DRUGS (12)
  1. CABERGOLINE [Suspect]
     Indication: RESTLESS LEGS SYNDROME
     Dosage: 0.5 MG, ORAL
     Route: 048
     Dates: end: 20050627
  2. CORTISONE ACETATE [Suspect]
     Indication: CERVICOBRACHIAL SYNDROME
  3. KARVEZIDE (HYDROCHLOROTHIAZIDE, IRBESARTAN) [Suspect]
  4. GLUCOPHAGE [Concomitant]
  5. VERAPAMIL-RATIOPHARM (VERAPAMIL) [Concomitant]
  6. NOVONORM (REPAGLINIDE) [Concomitant]
  7. THYRONAJOD (LEVOTHYROXINE SODIUM, POTASSIUM IODIDE) [Concomitant]
  8. ATARAX (HYDOXYZINE HYDROCHLORIDE) [Concomitant]
  9. ATORVASTATIN CALCIUM [Concomitant]
  10. INSULIN DETEMIR (INSULIN DETERMIR) [Concomitant]
  11. ANALGESICS (ANALGESICS) [Concomitant]
  12. ANTIDEPRESSANTS (ANTIDEPRESSANTS) [Concomitant]

REACTIONS (4)
  - ERYTHEMA [None]
  - POLYNEUROPATHY [None]
  - SPINAL DISORDER [None]
  - THERAPY NON-RESPONDER [None]
